FAERS Safety Report 20643106 (Version 1)
Quarter: 2022Q1

REPORT INFORMATION
  Report Type: Spontaneous
  Country: US (occurrence: None)
  Receive Date: 20220325
  Receipt Date: 20220325
  Transmission Date: 20220423
  Serious: No
  Sender: FDA-Public Use
  Company Number: None

PATIENT
  Age: 60 Year
  Sex: Female
  Weight: 54.39 kg

DRUGS (14)
  1. TASIGNA [Suspect]
     Active Substance: NILOTINIB
     Indication: Chronic myeloid leukaemia
     Dosage: FREQUENCY : TWICE A DAY;?
     Route: 048
     Dates: start: 202109
  2. TASIGNA [Suspect]
     Active Substance: NILOTINIB
     Indication: Philadelphia chromosome positive
  3. ALLOPURINOL [Concomitant]
     Active Substance: ALLOPURINOL
  4. ARIPIPRAZOLE [Concomitant]
     Active Substance: ARIPIPRAZOLE
  5. Aspirin-Acetaminophen-Caffeine [Concomitant]
  6. buropion HCI [Concomitant]
  7. Duloxetine HCI [Concomitant]
  8. HYDREA [Concomitant]
     Active Substance: HYDROXYUREA
  9. LYRICA [Concomitant]
     Active Substance: PREGABALIN
  10. MS CONTIN [Concomitant]
     Active Substance: MORPHINE SULFATE
  11. ONDANSETRON HYDROCHLORIDE [Concomitant]
     Active Substance: ONDANSETRON HYDROCHLORIDE
  12. ACETAMINOPHEN\OXYCODONE HYDROCHLORIDE [Concomitant]
     Active Substance: ACETAMINOPHEN\OXYCODONE HYDROCHLORIDE
  13. TOPIRAMATE [Concomitant]
     Active Substance: TOPIRAMATE
  14. VANCOMYCIN HYDROCHLORIDE [Concomitant]
     Active Substance: VANCOMYCIN HYDROCHLORIDE

REACTIONS (2)
  - Platelet count decreased [None]
  - Therapy interrupted [None]
